FAERS Safety Report 18324170 (Version 4)
Quarter: 2020Q4

REPORT INFORMATION
  Report Type: Spontaneous
  Country: GB (occurrence: GB)
  Receive Date: 20200929
  Receipt Date: 20201207
  Transmission Date: 20210113
  Serious: Yes (Other)
  Sender: FDA-Public Use
  Company Number: GB-REGENERON PHARMACEUTICALS, INC.-2020-78433

PATIENT

DRUGS (1)
  1. EYLEA [Suspect]
     Active Substance: AFLIBERCEPT
     Indication: AGE-RELATED MACULAR DEGENERATION
     Dosage: LEFT AFLIBERCEPT NUMBER 11 WITH PRE-FILLED SYRINGE

REACTIONS (4)
  - Retinal artery occlusion [Recovered/Resolved]
  - Blindness transient [Recovered/Resolved]
  - Device use issue [Unknown]
  - Intraocular pressure increased [Recovered/Resolved]
